FAERS Safety Report 24263798 (Version 2)
Quarter: 2024Q4

REPORT INFORMATION
  Report Type: Spontaneous
  Country: TH (occurrence: TH)
  Receive Date: 20240829
  Receipt Date: 20241010
  Transmission Date: 20250114
  Serious: Yes (Hospitalization, Other)
  Sender: ROCHE
  Company Number: TH-BoehringerIngelheim-2024-BI-047978

PATIENT
  Age: 61 Year
  Sex: Female
  Weight: 45 kg

DRUGS (2)
  1. ALTEPLASE [Suspect]
     Active Substance: ALTEPLASE
     Indication: Ischaemic stroke
     Route: 042
     Dates: start: 20240816
  2. ALTEPLASE [Suspect]
     Active Substance: ALTEPLASE
     Dosage: TOTAL DOSE 47 MILLILTER (ML) (BOLUS 4.7 ML 10 PERCENT (%), IV INFUSION 42.3 ML 90 PERCENT INFUSION 6
     Route: 042
     Dates: start: 20240816

REACTIONS (4)
  - Swollen tongue [Recovered/Resolved]
  - Mouth swelling [Recovered/Resolved]
  - Endotracheal intubation [Recovered/Resolved]
  - Angioedema [Unknown]

NARRATIVE: CASE EVENT DATE: 20240817
